FAERS Safety Report 6602032-1 (Version None)
Quarter: 2010Q1

REPORT INFORMATION
  Report Type: 
  Country: None (occurrence: None)
  Receive Date: 20100225
  Receipt Date: 20100216
  Transmission Date: 20100710
  Serious: Yes (Life-Threatening, Hospitalization)
  Sender: FDA-Public Use
  Company Number: JP-WATSON-2010-00969

PATIENT
  Sex: Male

DRUGS (12)
  1. RAPAFLO [Suspect]
     Indication: BENIGN PROSTATIC HYPERPLASIA
     Dosage: 4 MG, BID
     Route: 048
     Dates: start: 20091201, end: 20091230
  2. LEUPLIN [Suspect]
     Indication: PROSTATE CANCER
     Dosage: 3.75 MG, DAILY
     Route: 058
     Dates: start: 20091201, end: 20091201
  3. CASODEX [Suspect]
     Indication: PROSTATE CANCER
     Dosage: 80 MG, DAILY
     Route: 048
     Dates: start: 20091201, end: 20091230
  4. FLOMOX [Concomitant]
     Indication: RESPIRATORY TRACT INFECTION
     Dosage: 300 MG, DAILY
     Route: 048
     Dates: start: 20091222, end: 20091228
  5. CALONAL [Concomitant]
     Indication: RESPIRATORY TRACT INFECTION
     Dosage: UNK
     Route: 048
     Dates: start: 20091222, end: 20091228
  6. DASEN [Concomitant]
     Indication: RESPIRATORY TRACT INFECTION
     Dosage: 30 MG, DAILY
     Route: 048
     Dates: start: 20091226, end: 20091228
  7. MUCOSOLVAN                         /00546001/ [Concomitant]
     Indication: RESPIRATORY TRACT INFECTION
     Dosage: 45 MG, DAILY
     Route: 048
     Dates: start: 20091226, end: 20091228
  8. CODEINE SULFATE [Concomitant]
     Indication: RESPIRATORY TRACT INFECTION
     Dosage: 3 G, DAILY
     Route: 048
     Dates: start: 20091226, end: 20091228
  9. HOKUNALIN  TAPE [Concomitant]
     Indication: RESPIRATORY TRACT INFECTION
     Dosage: 2 MG, DAILY
     Route: 048
     Dates: start: 20091226, end: 20091228
  10. VITAMEDIN                          /00274301/ [Concomitant]
     Indication: DRUG USE FOR UNKNOWN INDICATION
     Dosage: INTRAVENOUS DRIP
     Route: 042
     Dates: start: 20091228, end: 20100103
  11. GASTER                             /00706001/ [Concomitant]
     Indication: DRUG USE FOR UNKNOWN INDICATION
     Dosage: 20 MG, INTRAVENOUS DRIP
     Route: 042
     Dates: start: 20091228, end: 20100104
  12. AFTACH [Concomitant]
     Indication: DRUG USE FOR UNKNOWN INDICATION
     Dosage: TAKEN AS NEEDED 1 OR 2 TAB/DAY
     Route: 049
     Dates: start: 20100107, end: 20100107

REACTIONS (6)
  - COUGH [None]
  - DYSPNOEA [None]
  - INTERSTITIAL LUNG DISEASE [None]
  - LIVER DISORDER [None]
  - PYREXIA [None]
  - RESPIRATORY TRACT INFECTION [None]
